FAERS Safety Report 24154670 (Version 3)
Quarter: 2024Q3

REPORT INFORMATION
  Report Type: Report from Study
  Country: US (occurrence: US)
  Receive Date: 20240731
  Receipt Date: 20240815
  Transmission Date: 20241017
  Serious: No
  Sender: ROCHE
  Company Number: US-ROCHE-10000032344

PATIENT
  Age: 74 Year
  Sex: Female

DRUGS (9)
  1. COTELLIC [Suspect]
     Active Substance: COBIMETINIB
     Indication: Histiocytosis
     Dosage: TAKE 2 TABLETS BY MOUTH DAILY. TAKE ON DAYS 1-21 OF A 28 DAY CYCLE.
     Route: 048
     Dates: start: 20230406
  2. SUMATRIPTAN [Concomitant]
     Active Substance: SUMATRIPTAN
  3. PROPRANOLOL [Concomitant]
     Active Substance: PROPRANOLOL HYDROCHLORIDE
  4. PAROXETINE [Concomitant]
     Active Substance: PAROXETINE
  5. LOSARTAN [Concomitant]
     Active Substance: LOSARTAN\LOSARTAN POTASSIUM
  6. GLIPIZIDE [Concomitant]
     Active Substance: GLIPIZIDE
  7. CETIRIZINE HYDROCHLORIDE [Concomitant]
     Active Substance: CETIRIZINE HYDROCHLORIDE
  8. ATORVASTATIN [Concomitant]
     Active Substance: ATORVASTATIN
  9. ALPRAZOLAM [Concomitant]
     Active Substance: ALPRAZOLAM

REACTIONS (2)
  - Off label use [Unknown]
  - No adverse event [Unknown]
